FAERS Safety Report 7619616-4 (Version None)
Quarter: 2011Q3

REPORT INFORMATION
  Report Type: 
  Country: None (occurrence: None)
  Receive Date: 20110719
  Receipt Date: 20090604
  Transmission Date: 20111222
  Serious: Yes (Hospitalization, Other)
  Sender: FDA-Public Use
  Company Number: US-BAYER-201040271NA

PATIENT
  Age: 71 Year
  Sex: Male
  Weight: 94 kg

DRUGS (22)
  1. TRASYLOL [Suspect]
     Indication: AORTIC SURGERY
     Dosage: 4.78 MILLION UNITS
     Route: 042
     Dates: start: 20070511, end: 20070511
  2. PRINIVIL [Concomitant]
     Indication: HYPERTENSION
     Dosage: 20 MG
     Route: 048
     Dates: start: 20001231
  3. TRASYLOL [Suspect]
     Dosage: 50 ML/HOUR
     Route: 042
     Dates: start: 20070511, end: 20070511
  4. HYDROCHLOROTHIAZIDE [Concomitant]
     Dosage: 50 MG
     Route: 048
     Dates: start: 20010101, end: 20070101
  5. PROTAMINE SULFATE [Concomitant]
     Dosage: 500 MG
     Route: 042
     Dates: start: 20070511
  6. PHENYLEPHRINE HCL [Concomitant]
     Dosage: 6.87 MG
     Route: 042
     Dates: start: 20070511
  7. MIDAZOLAM HCL [Concomitant]
     Dosage: 9 MG
     Route: 042
     Dates: start: 20070511
  8. TRIAMTERENE [Concomitant]
  9. INSULIN [Concomitant]
     Dosage: 60 UNITS
     Route: 042
     Dates: start: 20070511
  10. EPINEPHRINE [Concomitant]
     Dosage: 216.2
     Route: 042
     Dates: start: 20070511
  11. PLASMA [Concomitant]
     Dosage: 2 UNITS
     Route: 042
     Dates: start: 20070511
  12. ASPIRIN [Concomitant]
     Dosage: 81 MG
     Route: 048
  13. ESMOLOL [Concomitant]
     Dosage: 100 MG
     Route: 042
     Dates: start: 20070511
  14. CEFAZOLIN [Concomitant]
     Dosage: 6 GM
     Route: 042
     Dates: start: 20070511
  15. PRINIVIL [Concomitant]
     Dosage: UNK
     Dates: start: 19970101, end: 20001230
  16. HYDROCHLOROTHIAZIDE [Concomitant]
     Dosage: UNK
  17. LASIX [Concomitant]
     Dosage: 40 MG
     Route: 048
     Dates: start: 20070101
  18. HEPARIN [Concomitant]
     Dosage: 60,000 UNITS
     Route: 042
     Dates: start: 20070511
  19. RED BLOOD CELLS [Concomitant]
     Dosage: 1 UNIT
     Route: 042
     Dates: start: 20070511
  20. TRIAMTERENE [Concomitant]
     Dosage: 75 MG
     Route: 048
     Dates: start: 20010101, end: 20070101
  21. WARFARIN SODIUM [Concomitant]
     Dosage: 2 MG
     Route: 048
     Dates: start: 20020101, end: 20070101
  22. CRYOPRECIPITATES [Concomitant]
     Dosage: 10 UNITS
     Route: 042
     Dates: start: 20070511

REACTIONS (14)
  - UNEVALUABLE EVENT [None]
  - LEG AMPUTATION [None]
  - INJURY [None]
  - PAIN [None]
  - HAND AMPUTATION [None]
  - ANHEDONIA [None]
  - DEPRESSION [None]
  - RENAL FAILURE ACUTE [None]
  - FEAR [None]
  - PERONEAL NERVE PALSY [None]
  - NEUROPATHY PERIPHERAL [None]
  - ERECTILE DYSFUNCTION [None]
  - RENAL FAILURE [None]
  - ANXIETY [None]
